FAERS Safety Report 7374759-8 (Version None)
Quarter: 2011Q1

REPORT INFORMATION
  Report Type: 
  Country: None (occurrence: None)
  Receive Date: 20110325
  Receipt Date: 20101117
  Transmission Date: 20110831
  Serious: No
  Sender: FDA-Public Use
  Company Number: US-MYLANLABS-2010S1019057

PATIENT
  Age: 70 Year
  Sex: Male

DRUGS (6)
  1. FENTANYL-100 [Suspect]
     Indication: HERNIA
     Dosage: CHANGED Q72H
     Route: 062
     Dates: start: 20070101
  2. CLONAZEPAM [Concomitant]
  3. FENTANYL-100 [Suspect]
     Indication: FISTULA
     Dosage: CHANGED Q72H
     Route: 062
     Dates: start: 20070101
  4. LEXAPRO [Concomitant]
  5. ACETAMINOPHEN [Concomitant]
  6. FENTANYL-100 [Suspect]
     Indication: GASTROINTESTINAL DISORDER
     Dosage: CHANGED Q72H
     Route: 062
     Dates: start: 20070101

REACTIONS (6)
  - DRUG INEFFECTIVE [None]
  - APPLICATION SITE PAIN [None]
  - WITHDRAWAL SYNDROME [None]
  - DYSKINESIA [None]
  - TREMOR [None]
  - PAIN [None]
